FAERS Safety Report 10486067 (Version 1)
Quarter: 2014Q3

REPORT INFORMATION
  Report Type: Spontaneous
  Country: US (occurrence: None)
  Receive Date: 20140930
  Receipt Date: 20140930
  Transmission Date: 20150326
  Serious: Yes (Disabling)
  Sender: FDA-Public Use
  Company Number: None

PATIENT
  Age: 68 Year
  Sex: Female
  Weight: 58.97 kg

DRUGS (1)
  1. RECLAST [Suspect]
     Active Substance: ZOLEDRONIC ACID
     Indication: OSTEOPENIA
     Dates: start: 20140618, end: 20140618

REACTIONS (16)
  - Anxiety [None]
  - Decreased appetite [None]
  - Arthralgia [None]
  - Bone pain [None]
  - Nausea [None]
  - Pain [None]
  - Chills [None]
  - Burning sensation [None]
  - Pyrexia [None]
  - Screaming [None]
  - Gastrointestinal pain [None]
  - Hypokinesia [None]
  - Headache [None]
  - Heart rate irregular [None]
  - Muscle spasms [None]
  - Palpitations [None]

NARRATIVE: CASE EVENT DATE: 20140618
